FAERS Safety Report 7812115-6 (Version None)
Quarter: 2011Q4

REPORT INFORMATION
  Report Type: 
  Country: None (occurrence: None)
  Receive Date: 20111011
  Receipt Date: 20110927
  Transmission Date: 20120403
  Serious: Yes (Hospitalization, Other)
  Sender: FDA-Public Use
  Company Number: NSR_00280_2011

PATIENT
  Age: 21 Year
  Sex: Female

DRUGS (6)
  1. OMEPRAZOLE [Concomitant]
  2. IBUPROFEN [Concomitant]
  3. CYCLIZINE [Concomitant]
  4. TRAMADOL HCL [Suspect]
     Indication: ABDOMINAL PAIN
     Dosage: (50 MG TID) ; (100 MG QID)
  5. SUMATRIPTAN (SUMATRIPTAN) [Suspect]
     Indication: PRODUCT USED FOR UNKNOWN INDICATION
     Dosage: (50 MG QD)
  6. METOCLOPRAMIDE [Concomitant]

REACTIONS (3)
  - PITUITARY TUMOUR BENIGN [None]
  - ADRENAL INSUFFICIENCY [None]
  - VISION BLURRED [None]
